FAERS Safety Report 4514497-X (Version None)
Quarter: 2004Q4

REPORT INFORMATION
  Report Type: 
  Country: None (occurrence: None)
  Receive Date: 20041126
  Receipt Date: 20041112
  Transmission Date: 20050328
  Serious: Yes (Other)
  Sender: FDA-Public Use
  Company Number: 200410205

PATIENT
  Age: 79 Year
  Sex: Female

DRUGS (1)
  1. ACULAR [Suspect]
     Indication: MACULAR OEDEMA
     Dosage: 1 DROP QID EYE
     Dates: start: 20030501, end: 20030601

REACTIONS (5)
  - CORNEAL DEGENERATION [None]
  - CORNEAL THINNING [None]
  - CORNEAL TRANSPLANT [None]
  - CORNEAL ULCER [None]
  - PSEUDOPHAKIA [None]
